FAERS Safety Report 7483609-0 (Version None)
Quarter: 2011Q2

REPORT INFORMATION
  Report Type: 
  Country: None (occurrence: None)
  Receive Date: 20110517
  Receipt Date: 20110512
  Transmission Date: 20111010
  Serious: Yes (Other)
  Sender: FDA-Public Use
  Company Number: US-PFIZER INC-US-WYE-H15734310

PATIENT
  Sex: Male
  Weight: 77.1 kg

DRUGS (7)
  1. LITHIUM [Concomitant]
  2. SEROQUEL [Concomitant]
  3. PRISTIQ [Suspect]
     Indication: DEPRESSION
     Dosage: 50 MG, 1X/DAY
     Route: 065
     Dates: start: 20100101, end: 20100609
  4. LAMICTAL [Concomitant]
  5. PRISTIQ [Suspect]
     Dosage: 25 MG, 1X/DAY
     Route: 065
     Dates: start: 20100610
  6. PRISTIQ [Suspect]
     Dosage: ONE HALF A PILL PER DAY
     Dates: start: 20100611
  7. LIPITOR [Concomitant]

REACTIONS (10)
  - SUICIDAL IDEATION [None]
  - HYPERTENSION [None]
  - ANXIETY [None]
  - DEPRESSION [None]
  - IRRITABILITY [None]
  - WRONG TECHNIQUE IN DRUG USAGE PROCESS [None]
  - ANGER [None]
  - HYPERHIDROSIS [None]
  - DRUG WITHDRAWAL SYNDROME [None]
  - FATIGUE [None]
